FAERS Safety Report 10005194 (Version 1)
Quarter: 2014Q1

REPORT INFORMATION
  Report Type: Spontaneous
  Country: IT (occurrence: IT)
  Receive Date: 20140312
  Receipt Date: 20140312
  Transmission Date: 20141002
  Serious: Yes (Hospitalization)
  Sender: FDA-Public Use
  Company Number: PHHY2014IT027454

PATIENT
  Age: 47 Year
  Sex: Male

DRUGS (5)
  1. ROCURONIUM BROMIDE [Suspect]
     Dosage: 40 MG, ONCE/SINGLE
     Dates: start: 20131209, end: 20131209
  2. DELORAZEPAM [Concomitant]
  3. FENTANEST [Concomitant]
  4. PRAMIPEXOLE [Concomitant]
  5. PROPOFOL [Concomitant]
     Dosage: 200 MG, UNK

REACTIONS (4)
  - Epiglottic oedema [Recovered/Resolved]
  - Tongue oedema [Recovered/Resolved]
  - Swelling face [Recovered/Resolved]
  - Rash [Recovered/Resolved]
